FAERS Safety Report 21735330 (Version 1)
Quarter: 2022Q4

REPORT INFORMATION
  Report Type: Report from Study
  Country: GR (occurrence: GR)
  Receive Date: 20221215
  Receipt Date: 20221215
  Transmission Date: 20230112
  Serious: Yes (Other)
  Sender: FDA-Public Use
  Company Number: GR-ABBVIE-22K-066-4276436-00

PATIENT
  Age: 67 Year
  Sex: Female

DRUGS (12)
  1. CARBIDOPA\LEVODOPA [Suspect]
     Active Substance: CARBIDOPA\LEVODOPA
     Indication: Parkinson^s disease
     Dosage: MORNING DOSE: 8 ML; CONTINUOUS RATE: 3.4 ML/H (MORNING) 3.7 (EVENING); EXTRA DOSE: 3.2 ML
     Route: 050
  2. CARBIDOPA\LEVODOPA [Suspect]
     Active Substance: CARBIDOPA\LEVODOPA
     Dosage: MORNING DOSE: 8.0ML; CONTINUOUS RATE: 3.2ML/H; EXTRA DOSE: 3.1ML
     Route: 050
     Dates: start: 201701
  3. CARBIDOPA\LEVODOPA [Suspect]
     Active Substance: CARBIDOPA\LEVODOPA
     Dosage: MORNING DOSE: 8.0ML; CONTINUOUS RATE: 3.4ML/H; EXTRA DOSE: 3.2ML
     Route: 050
  4. CARBIDOPA\LEVODOPA [Suspect]
     Active Substance: CARBIDOPA\LEVODOPA
     Dosage: MORNING DOSE: 8.0ML; CONTINUOUS RATE: 3.4ML/H; EXTRA DOSE: 3.2ML
     Route: 050
  5. SYMMETREL [Concomitant]
     Active Substance: AMANTADINE HYDROCHLORIDE
     Indication: Parkinson^s disease
     Dosage: 1X2 (MORNING)
     Route: 048
  6. APOMORPHINE [Concomitant]
     Active Substance: APOMORPHINE
     Indication: Bradykinesia
     Dosage: 1X1 (MORNING)
     Route: 050
  7. SEROQUEL [Concomitant]
     Active Substance: QUETIAPINE FUMARATE
     Indication: Product used for unknown indication
     Dosage: 1X1 (EVERY NIGHT)
     Route: 048
  8. MEDOPREL [Concomitant]
     Indication: Gastrointestinal disorder prophylaxis
     Dosage: 1X1 (MORNING)
     Route: 048
  9. NEXIUM [Concomitant]
     Active Substance: ESOMEPRAZOLE MAGNESIUM
     Indication: Gastrointestinal disorder prophylaxis
  10. COVID-19 VACCINE [Concomitant]
     Indication: COVID-19 immunisation
     Dosage: 1ST DOSE
     Route: 030
  11. COVID-19 VACCINE [Concomitant]
     Indication: COVID-19 immunisation
     Dosage: 2ND DOSE
     Route: 030
  12. COVID-19 VACCINE [Concomitant]
     Indication: COVID-19 immunisation
     Dosage: 3RD DOSE
     Route: 030

REACTIONS (11)
  - Spinal stenosis [Recovered/Resolved]
  - Musculoskeletal stiffness [Recovered/Resolved]
  - Coronavirus infection [Recovered/Resolved]
  - Abdominal rigidity [Recovered/Resolved]
  - Pain in extremity [Unknown]
  - Gait disturbance [Recovered/Resolved]
  - Weight decreased [Recovered/Resolved]
  - Stoma site erythema [Recovered/Resolved]
  - Stoma site discharge [Recovered/Resolved]
  - Hyperkinesia [Recovered/Resolved]
  - Abdominal distension [Recovered/Resolved]

NARRATIVE: CASE EVENT DATE: 20220401
